FAERS Safety Report 9377081 (Version 2)
Quarter: 2013Q3

REPORT INFORMATION
  Report Type: Spontaneous
  Country: US (occurrence: US)
  Receive Date: 20130701
  Receipt Date: 20130717
  Transmission Date: 20140515
  Serious: No
  Sender: FDA-Public Use
  Company Number: US-009507513-1306USA014727

PATIENT
  Age: 39 Year
  Sex: Female
  Weight: 82.86 kg

DRUGS (1)
  1. ASMANEX TWISTHALER [Suspect]
     Indication: ASTHMA
     Dosage: AEROSOL, 2 INHALATIONS, AT BED TIME
     Route: 055
     Dates: start: 20130424, end: 201307

REACTIONS (3)
  - Drug dose omission [Unknown]
  - Product quality issue [Unknown]
  - No adverse event [Unknown]
